FAERS Safety Report 5376371-9 (Version None)
Quarter: 2007Q2

REPORT INFORMATION
  Report Type: 
  Country: None (occurrence: None)
  Receive Date: 20070627
  Receipt Date: 20060523
  Transmission Date: 20071010
  Serious: Yes (Hospitalization)
  Sender: FDA-Public Use
  Company Number: 2006067590

PATIENT
  Age: 61 Year
  Sex: Male
  Weight: 95.2554 kg

DRUGS (12)
  1. NICOTROL [Suspect]
     Indication: SMOKING CESSATION THERAPY
     Dosage: TWO CARTRIDGES USED BACK TO BACK, INHALATION
     Route: 055
     Dates: start: 20060522, end: 20060522
  2. ROSUVASTATIN (ROSUVASTATIN) [Concomitant]
  3. ISOSORBIDE MONITRATE         (ISOSORBIDE MONONITRATE) [Concomitant]
  4. GLIPIZIDE [Concomitant]
  5. LISINOPRIL [Concomitant]
  6. FLUOXETINE [Concomitant]
  7. RANITIDINE [Concomitant]
  8. ACETYLSALICYLIC ACID SRT [Concomitant]
  9. HALOPERIDOL [Concomitant]
  10. CARVEDILOL [Concomitant]
  11. CLOPIDOGREL BISULFATE [Concomitant]
  12. VALPROIC ACID [Concomitant]

REACTIONS (2)
  - DIARRHOEA [None]
  - OVERDOSE [None]
